FAERS Safety Report 8436258-1 (Version None)
Quarter: 2012Q2

REPORT INFORMATION
  Report Type: 
  Country: None (occurrence: None)
  Receive Date: 20120614
  Receipt Date: 20120612
  Transmission Date: 20120825
  Serious: No
  Sender: FDA-Public Use
  Company Number: US-PFIZER INC-2012142769

PATIENT
  Sex: Female
  Weight: 74.83 kg

DRUGS (3)
  1. PAXIL [Concomitant]
     Indication: DEPRESSION
     Dosage: 37.5 MG, DAILY
  2. XANAX [Concomitant]
     Indication: DEPRESSION
     Dosage: 1 MG, 4X/DAY
  3. NICOTROL [Suspect]
     Indication: SMOKING CESSATION THERAPY
     Dosage: UNK, AS NEEDED
     Dates: start: 20100101

REACTIONS (2)
  - DRUG INEFFECTIVE [None]
  - DRUG ADMINISTRATION ERROR [None]
